FAERS Safety Report 4622594-3 (Version None)
Quarter: 2005Q1

REPORT INFORMATION
  Report Type: 
  Country: None (occurrence: None)
  Receive Date: 20050325
  Receipt Date: 20050325
  Transmission Date: 20050727
  Serious: Yes (Hospitalization)
  Sender: FDA-Public Use
  Company Number: None

PATIENT
  Age: 73 Year
  Sex: Male

DRUGS (22)
  1. CIPROFLOXACIN [Suspect]
     Dosage: 250MG PO BID
     Route: 048
     Dates: start: 20050105, end: 20050119
  2. WARFARIN [Suspect]
     Indication: COAGULOPATHY
     Dosage: 5MG PO QHS
     Route: 048
     Dates: start: 20040923, end: 20050119
  3. ALBUTEROL [Concomitant]
  4. CYCLOBENZAPRINE HCL [Concomitant]
  5. DIGOXIN [Concomitant]
  6. FLUNISOLIDE [Concomitant]
  7. FLUOXETINE [Concomitant]
  8. FUROSEMIDE [Concomitant]
  9. GATIFLOXACIN [Concomitant]
  10. INSULIN [Concomitant]
  11. IRBESARTAN [Concomitant]
  12. METHYLCELLULOSE OPHTHALMIC SOLUTION [Concomitant]
  13. METOLAZONE [Concomitant]
  14. METOPROLOL TARTRATE [Concomitant]
  15. OXYCODONE HCL [Concomitant]
  16. POTASSIUM CHLORIDE [Concomitant]
  17. QUININE SULFATE [Concomitant]
  18. SENNA [Concomitant]
  19. SIMVASTATIN [Concomitant]
  20. TAMSULOSIN [Concomitant]
  21. TRAZADONE [Concomitant]
  22. COUMADIN [Concomitant]

REACTIONS (4)
  - ASTHENIA [None]
  - FAECAL OCCULT BLOOD POSITIVE [None]
  - FALL [None]
  - INTERNATIONAL NORMALISED RATIO INCREASED [None]
